FAERS Safety Report 4601076-9 (Version None)
Quarter: 2005Q1

REPORT INFORMATION
  Report Type: 
  Country: None (occurrence: None)
  Receive Date: 20050308
  Receipt Date: 20050224
  Transmission Date: 20050727
  Serious: Yes (Hospitalization, Other)
  Sender: FDA-Public Use
  Company Number: US-JNJFOC-20040400978

PATIENT
  Sex: Female
  Weight: 58.97 kg

DRUGS (23)
  1. REMICADE [Suspect]
     Route: 042
  2. REMICADE [Suspect]
     Route: 042
  3. REMICADE [Suspect]
     Route: 042
  4. REMICADE [Suspect]
     Indication: RHEUMATOID ARTHRITIS
     Route: 042
  5. ^MET^ [Concomitant]
  6. METHOTREXATE [Concomitant]
     Indication: RHEUMATOID ARTHRITIS
  7. FOLIC ACID [Concomitant]
  8. LEUCOVORIN [Concomitant]
  9. PROTONIX [Concomitant]
  10. SOMA [Concomitant]
  11. VICODIN [Concomitant]
  12. VICODIN [Concomitant]
  13. MS CONTIN [Concomitant]
  14. FLEXERIL [Concomitant]
  15. FISH OIL [Concomitant]
  16. VIOXX [Concomitant]
  17. CLOTRIMAZOLE [Concomitant]
  18. WELLBUTRIN [Concomitant]
  19. CLONAZEPAM [Concomitant]
  20. AMBIEN [Concomitant]
  21. COLACE [Concomitant]
  22. ELAVIL [Concomitant]
  23. TEGRETOL [Concomitant]

REACTIONS (5)
  - LIMB OPERATION [None]
  - PNEUMONIA [None]
  - PULMONARY MYCOSIS [None]
  - SHOULDER OPERATION [None]
  - THERAPEUTIC RESPONSE DECREASED [None]
